FAERS Safety Report 5460167-3 (Version None)
Quarter: 2007Q3

REPORT INFORMATION
  Report Type: 
  Country: None (occurrence: None)
  Receive Date: 20070919
  Receipt Date: 20070524
  Transmission Date: 20080115
  Serious: No
  Sender: FDA-Public Use
  Company Number: BR-ASTRAZENECA-2007UW12995

PATIENT
  Age: 32 Year
  Sex: Female

DRUGS (4)
  1. SEROQUEL [Suspect]
     Indication: BIPOLAR DISORDER
     Route: 048
     Dates: start: 20070101
  2. SEROQUEL [Suspect]
     Route: 048
     Dates: start: 20070301
  3. SEROQUEL [Suspect]
     Route: 048
     Dates: start: 20070401
  4. CARBOLITIUM [Concomitant]
     Indication: BIPOLAR DISORDER
     Route: 048
     Dates: start: 20061001

REACTIONS (1)
  - TEETH BRITTLE [None]
